FAERS Safety Report 25566523 (Version 1)
Quarter: 2025Q3

REPORT INFORMATION
  Report Type: Spontaneous
  Country: US (occurrence: None)
  Receive Date: 20250715
  Receipt Date: 20250715
  Transmission Date: 20251021
  Serious: Yes (Hospitalization, Disabling, Other)
  Sender: FDA-CTU
  Company Number: None

PATIENT
  Age: 35 Year
  Sex: Female
  Weight: 116.55 kg

DRUGS (24)
  1. OZEMPIC [Suspect]
     Active Substance: SEMAGLUTIDE
     Indication: Weight abnormal
     Route: 050
     Dates: start: 20241220, end: 20241228
  2. Dexcom 7 [Concomitant]
  3. SALONPAS PAIN RELIEF [Concomitant]
     Active Substance: MENTHOL\METHYL SALICYLATE
  4. GABAPENTIN [Concomitant]
     Active Substance: GABAPENTIN
  5. FLEXERIL [Concomitant]
     Active Substance: CYCLOBENZAPRINE HYDROCHLORIDE
  6. LIDOCAINE [Concomitant]
     Active Substance: LIDOCAINE
  7. LINZESS [Concomitant]
     Active Substance: LINACLOTIDE
  8. BENTYL [Concomitant]
     Active Substance: DICYCLOMINE HYDROCHLORIDE
  9. Comprozine 25mg sup [Concomitant]
  10. POT Chloride 10Meq [Concomitant]
  11. GEODON [Concomitant]
     Active Substance: ZIPRASIDONE HYDROCHLORIDE\ZIPRASIDONE MESYLATE
  12. KLONOPIN [Concomitant]
     Active Substance: CLONAZEPAM
  13. Vistaril 25mg [Concomitant]
  14. WELLBUTRIN XL [Concomitant]
     Active Substance: BUPROPION HYDROCHLORIDE
  15. CYMBALTA [Concomitant]
     Active Substance: DULOXETINE HYDROCHLORIDE
  16. Amerge 2.5mg [Concomitant]
  17. TOPAMAX [Concomitant]
     Active Substance: TOPIRAMATE
  18. TRAZODONE [Concomitant]
     Active Substance: TRAZODONE HYDROCHLORIDE
  19. AMITIZA [Concomitant]
     Active Substance: LUBIPROSTONE
  20. ALBUTEROL [Concomitant]
     Active Substance: ALBUTEROL
  21. B12 [Concomitant]
  22. VITAMIN D3 [Concomitant]
     Active Substance: CHOLECALCIFEROL
  23. Bariatric Multivitamin [Concomitant]
  24. Bariatric Iron with Vitamin C [Concomitant]

REACTIONS (2)
  - Hypoglycaemia [None]
  - Weight increased [None]

NARRATIVE: CASE EVENT DATE: 20241228
